FAERS Safety Report 8309375-4 (Version None)
Quarter: 2012Q2

REPORT INFORMATION
  Report Type: 
  Country: None (occurrence: None)
  Receive Date: 20120420
  Receipt Date: 20120411
  Transmission Date: 20120825
  Serious: Yes (Hospitalization, Other)
  Sender: FDA-Public Use
  Company Number: 2011SP052929

PATIENT
  Age: 76 Year
  Sex: Female

DRUGS (13)
  1. CLONAZEPAM [Concomitant]
  2. PAROXETINE HCL [Concomitant]
  3. VALSARTAN [Concomitant]
  4. ETIZOLAM [Concomitant]
  5. RILMAZAFONE HYDROCHLORIDE [Concomitant]
  6. OMEPRAZOLE [Concomitant]
  7. FUROSEMIDE [Concomitant]
  8. SENNOSIDE [Concomitant]
  9. ZOLPIDEM [Concomitant]
  10. FURSULTIAMINE [Concomitant]
  11. MIRTAZAPINE [Suspect]
     Indication: DEPRESSION
     Dosage: 15 MG;QD;PO, 7.5 MG;QD;PO
     Route: 048
     Dates: start: 20110722, end: 20110930
  12. MIRTAZAPINE [Suspect]
     Indication: DEPRESSION
     Dosage: 15 MG;QD;PO, 7.5 MG;QD;PO
     Route: 048
     Dates: start: 20110708, end: 20110721
  13. LEVOTHYROXINE SODIUM [Concomitant]

REACTIONS (10)
  - MIDDLE INSOMNIA [None]
  - ALANINE AMINOTRANSFERASE INCREASED [None]
  - DIZZINESS [None]
  - ASPARTATE AMINOTRANSFERASE INCREASED [None]
  - HEPATITIS [None]
  - UPPER RESPIRATORY TRACT INFLAMMATION [None]
  - GAMMA-GLUTAMYLTRANSFERASE INCREASED [None]
  - DECREASED APPETITE [None]
  - INCREASED APPETITE [None]
  - PYREXIA [None]
